FAERS Safety Report 6326514-5 (Version None)
Quarter: 2009Q3

REPORT INFORMATION
  Report Type: 
  Country: None (occurrence: None)
  Receive Date: 20090821
  Receipt Date: 20090806
  Transmission Date: 20100115
  Serious: Yes (Other)
  Sender: FDA-Public Use
  Company Number: JPI-P-007672

PATIENT
  Age: 32 Year
  Sex: Female

DRUGS (5)
  1. FLUVOXAMINE MALEATE [Suspect]
     Indication: DEPRESSION
     Dosage: 75 MG, 1 D, ORAL, 50 MG, 1 D, ORAL
     Route: 048
     Dates: start: 20090527, end: 20090608
  2. FLUVOXAMINE MALEATE [Suspect]
     Indication: DEPRESSION
     Dosage: 75 MG, 1 D, ORAL, 50 MG, 1 D, ORAL
     Route: 048
     Dates: start: 20090609
  3. SULPIRIDE [Concomitant]
  4. ALPRAZOLAM [Concomitant]
  5. BROTIZOLAM [Concomitant]

REACTIONS (4)
  - FEELING ABNORMAL [None]
  - SELF INJURIOUS BEHAVIOUR [None]
  - SKIN LACERATION [None]
  - SUICIDAL IDEATION [None]
